FAERS Safety Report 4939617-4 (Version None)
Quarter: 2006Q1

REPORT INFORMATION
  Report Type: 
  Country: None (occurrence: None)
  Receive Date: 20060307
  Receipt Date: 20060222
  Transmission Date: 20060701
  Serious: Yes (Hospitalization, Other)
  Sender: FDA-Public Use
  Company Number: 2006029447

PATIENT
  Age: 7 Year
  Sex: Female

DRUGS (3)
  1. ATARAX [Suspect]
     Indication: ILL-DEFINED DISORDER
     Dosage: ORAL
     Route: 048
     Dates: end: 20060105
  2. ALIMEMAZINE TARTRATE (ALIMEMAZINE TARTRATE) [Suspect]
     Indication: ILL-DEFINED DISORDER
     Dosage: ORAL
     Route: 048
     Dates: end: 20060105
  3. DEFERIPRONE (DEFERIPRONE) [Suspect]
     Indication: THALASSAEMIA
     Dosage: 6 GRAM, ORAL
     Route: 048
     Dates: start: 20001101, end: 20060119

REACTIONS (9)
  - ASTHENIA [None]
  - COGWHEEL RIGIDITY [None]
  - COORDINATION ABNORMAL [None]
  - DIFFICULTY IN WALKING [None]
  - DYSKINESIA [None]
  - DYSTONIA [None]
  - FALL [None]
  - GAIT DISTURBANCE [None]
  - NYSTAGMUS [None]
